FAERS Safety Report 4991145-6 (Version None)
Quarter: 2006Q2

REPORT INFORMATION
  Report Type: 
  Country: None (occurrence: None)
  Receive Date: 20060428
  Receipt Date: 20050509
  Transmission Date: 20061013
  Serious: Yes (Hospitalization)
  Sender: FDA-Public Use
  Company Number: 26597

PATIENT
  Age: 45 Year
  Sex: Male
  Weight: 70.5 kg

DRUGS (3)
  1. ALDARA [Suspect]
     Indication: ACTINIC KERATOSIS
     Dosage: SEE IMAGE
     Route: 061
     Dates: start: 20041208, end: 20050124
  2. ALDARA [Suspect]
     Indication: ACTINIC KERATOSIS
     Dosage: SEE IMAGE
     Route: 061
     Dates: start: 20050125, end: 20050425
  3. NON STEROIDA ANTI-INFLAMATORY DRUG [Suspect]

REACTIONS (2)
  - CONVULSION [None]
  - DIZZINESS [None]
